FAERS Safety Report 9271362 (Version 1)
Quarter: 2013Q2

REPORT INFORMATION
  Report Type: Spontaneous
  Country: US (occurrence: US)
  Receive Date: 20130506
  Receipt Date: 20130506
  Transmission Date: 20140414
  Serious: No
  Sender: FDA-Public Use
  Company Number: US-PFIZER INC-2013135966

PATIENT
  Age: 43 Year
  Sex: Female

DRUGS (5)
  1. CORGARD [Suspect]
     Dosage: 80 MG, 2X/DAY
  2. CORGARD [Suspect]
     Dosage: 20 MG, DAILY
  3. HYDROCHLOROTHIAZIDE [Suspect]
     Dosage: UNK
  4. EXFORGE [Suspect]
     Dosage: UNK
  5. EXFORGE HCT [Suspect]
     Dosage: UNK

REACTIONS (2)
  - Headache [Recovered/Resolved]
  - Expired drug administered [Unknown]
